FAERS Safety Report 9553220 (Version 3)
Quarter: 2013Q4

REPORT INFORMATION
  Report Type: Report from Study
  Country: US (occurrence: US)
  Receive Date: 20130925
  Receipt Date: 20131115
  Transmission Date: 20140711
  Serious: Yes (Hospitalization)
  Sender: FDA-Public Use
  Company Number: US-SANOFI-AVENTIS-2013SA084501

PATIENT
  Age: 37 Year
  Sex: Female
  Weight: 68 kg

DRUGS (5)
  1. AUBAGIO [Suspect]
     Indication: MULTIPLE SCLEROSIS
     Dosage: TAKEN FROM-A COUPLE WEEKS AGO
     Route: 048
     Dates: start: 20130729
  2. ZANAFLEX [Concomitant]
     Indication: MUSCLE SPASMS
  3. LORTAB [Concomitant]
     Indication: MIGRAINE
  4. SUMATRIPTAN [Concomitant]
     Indication: MIGRAINE
  5. CELEBREX [Concomitant]
     Indication: HEADACHE

REACTIONS (5)
  - Adverse event [Unknown]
  - Muscle spasms [Not Recovered/Not Resolved]
  - Condition aggravated [Not Recovered/Not Resolved]
  - Mood swings [Not Recovered/Not Resolved]
  - Restless legs syndrome [Not Recovered/Not Resolved]
